FAERS Safety Report 12666387 (Version 3)
Quarter: 2016Q4

REPORT INFORMATION
  Report Type: Spontaneous
  Country: ZA (occurrence: ZA)
  Receive Date: 20160818
  Receipt Date: 20161212
  Transmission Date: 20170207
  Serious: Yes (Death, Life-Threatening, Other)
  Sender: FDA-Public Use
  Company Number: ZA-ELI_LILLY_AND_COMPANY-ZA201608007884

PATIENT
  Age: 59 Year
  Sex: Female

DRUGS (1)
  1. HUMALOG MIX75/25 [Suspect]
     Active Substance: INSULIN LISPRO
     Indication: PRODUCT USED FOR UNKNOWN INDICATION
     Dosage: UNK, UNKNOWN
     Route: 065
     Dates: start: 201607

REACTIONS (7)
  - Hepatic cirrhosis [Unknown]
  - Candida sepsis [Unknown]
  - Non-alcoholic steatohepatitis [Unknown]
  - Acute on chronic liver failure [Fatal]
  - Varices oesophageal [Unknown]
  - Cerebrovascular accident [Unknown]
  - Portal hypertension [Unknown]

NARRATIVE: CASE EVENT DATE: 201607
